FAERS Safety Report 7577972-X (Version None)
Quarter: 2011Q2

REPORT INFORMATION
  Report Type: 
  Country: None (occurrence: None)
  Receive Date: 20110628
  Receipt Date: 20100421
  Transmission Date: 20111010
  Serious: Yes (Other)
  Sender: FDA-Public Use
  Company Number: US-PFIZER INC-2010051309

PATIENT
  Sex: Female
  Weight: 86.168 kg

DRUGS (4)
  1. GLYBURIDE [Concomitant]
  2. INSULIN [Concomitant]
  3. CEREBYX [Suspect]
     Indication: CONVULSION
     Dosage: 250 MG, UNK
     Dates: start: 20100419
  4. METFORMIN [Concomitant]

REACTIONS (1)
  - CONVULSION [None]
